FAERS Safety Report 5068749-8 (Version None)
Quarter: 2006Q3

REPORT INFORMATION
  Report Type: 
  Country: None (occurrence: None)
  Receive Date: 20060802
  Receipt Date: 20060315
  Transmission Date: 20061208
  Serious: No
  Sender: FDA-Public Use
  Company Number: US-BRISTOL-MYERS SQUIBB COMPANY-13316153

PATIENT
  Age: 79 Year
  Sex: Male
  Weight: 99 kg

DRUGS (3)
  1. COUMADIN [Suspect]
     Indication: ATRIOVENTRICULAR BLOCK
     Route: 048
     Dates: start: 20010701
  2. COUMADIN [Suspect]
     Indication: ATRIAL FIBRILLATION
     Route: 048
     Dates: start: 20010701
  3. IRON [Concomitant]
     Dosage: TAKEN FOR LESS THAN ONE MONTH
     Dates: start: 20060101

REACTIONS (2)
  - INTERNATIONAL NORMALISED RATIO INCREASED [None]
  - WEIGHT DECREASED [None]
